FAERS Safety Report 10370263 (Version 1)
Quarter: 2014Q1

REPORT INFORMATION
  Report Type: Spontaneous
  Country: US (occurrence: None)
  Receive Date: 20140306
  Receipt Date: 20140306
  Transmission Date: 20141002
  Serious: Yes (Hospitalization)
  Sender: FDA-Public Use
  Company Number: 163-21880-13080578

PATIENT
  Age: 65 Year
  Sex: Male

DRUGS (10)
  1. REVLIMID [Suspect]
     Indication: PLASMA CELL MYELOMA
     Dosage: 25 MG, 21 IN 21 D, PO
     Route: 048
     Dates: start: 20130718
  2. ADVIL (IBUPROFEN) [Concomitant]
  3. ASPIRIN LOW (ACETYLSALICYLIC ACID) [Concomitant]
  4. BYSTOLIC (NEBIVOLOL HYDROCHLORIDE) [Concomitant]
  5. COENZYME Q10 (UBIDECARENONE) [Concomitant]
  6. EFFEXOR XR (VENLAFAXINE HYDROCHLORIDE) (75 MILLIGRAM, CAPSULE) (VENLAFAXINE HYDROCHLORIDE) [Concomitant]
  7. FINASTERIDE [Concomitant]
  8. FLOMAX (TAMSULOSIN) [Concomitant]
  9. GUANFACINE HCL (GUANFACINE HYDROCHLORIDE) [Concomitant]
  10. FERROUS SULFATE [Concomitant]

REACTIONS (4)
  - Haemoglobin decreased [None]
  - Fatigue [None]
  - Myalgia [None]
  - Pyrexia [None]
